APPROVED DRUG PRODUCT: SUMATRIPTAN SUCCINATE
Active Ingredient: SUMATRIPTAN SUCCINATE
Strength: EQ 6MG BASE/0.5ML (EQ 12MG BASE/ML)
Dosage Form/Route: INJECTABLE;SUBCUTANEOUS
Application: A200183 | Product #001 | TE Code: AP
Applicant: HIKMA FARMACEUTICA PORTUGAL SA
Approved: Sep 16, 2013 | RLD: No | RS: No | Type: RX